FAERS Safety Report 6063989-3 (Version None)
Quarter: 2009Q1

REPORT INFORMATION
  Report Type: 
  Country: None (occurrence: None)
  Receive Date: 20090203
  Receipt Date: 20090203
  Transmission Date: 20090719
  Serious: Yes (Disabling)
  Sender: FDA-Public Use
  Company Number: None

PATIENT
  Age: 82 Year
  Sex: Female
  Weight: 68.9467 kg

DRUGS (2)
  1. OCTREOTIDE 1000MCG/5ML TEVA [Suspect]
  2. OCTREOTIDE 5000MCG/5ML TEVA [Suspect]
     Indication: ASCITES
     Dosage: 200MCG EVERY 8 HOURS SQ
     Route: 058
     Dates: start: 20081223, end: 20081223

REACTIONS (2)
  - INTERCEPTED DRUG DISPENSING ERROR [None]
  - MEDICATION ERROR [None]
